FAERS Safety Report 17020828 (Version 4)
Quarter: 2020Q1

REPORT INFORMATION
  Report Type: Spontaneous
  Country: US (occurrence: US)
  Receive Date: 20191112
  Receipt Date: 20200213
  Transmission Date: 20200409
  Serious: Yes (Death, Other)
  Sender: FDA-Public Use
  Company Number: US-PFIZER INC-2019487998

PATIENT
  Age: 85 Year
  Sex: Male
  Weight: 58.97 kg

DRUGS (2)
  1. VYNDAQEL [Suspect]
     Active Substance: TAFAMIDIS MEGLUMINE
     Indication: CARDIAC AMYLOIDOSIS
  2. VYNDAQEL [Suspect]
     Active Substance: TAFAMIDIS MEGLUMINE
     Indication: AMYLOIDOSIS
     Dosage: 80 MG, 1X/DAY, (20 MG FOUR CAPSULES), (1XDAY 20 MG-(4))
     Route: 048
     Dates: start: 201906, end: 20190930

REACTIONS (1)
  - Heart rate increased [Fatal]

NARRATIVE: CASE EVENT DATE: 201906
